FAERS Safety Report 11936401 (Version 3)
Quarter: 2016Q1

REPORT INFORMATION
  Report Type: Spontaneous
  Country: FR (occurrence: FR)
  Receive Date: 20160121
  Receipt Date: 20160222
  Transmission Date: 20160526
  Serious: Yes (Hospitalization)
  Sender: FDA-Public Use
  Company Number: FR-009507513-1601FRA004484

PATIENT
  Age: 35 Year
  Sex: Female

DRUGS (4)
  1. GONAPEPTYL [Suspect]
     Active Substance: TRIPTORELIN ACETATE
     Dosage: 1 DF IN SINGLE DOSE
     Route: 058
     Dates: start: 2015, end: 2015
  2. FOLLITROPIN BETA [Suspect]
     Active Substance: FOLLITROPIN
     Dosage: 300 IU, FOR 3 DAYS
     Route: 058
     Dates: start: 201506, end: 201507
  3. FOLLITROPIN BETA [Suspect]
     Active Substance: FOLLITROPIN
     Dosage: 225 IU, FOR  6 DAYS
     Route: 058
     Dates: start: 201506, end: 201507
  4. OVITRELLE [Suspect]
     Active Substance: CHORIOGONADOTROPIN ALFA
     Dosage: 1 DF IN SINGLE DOSE
     Route: 058
     Dates: start: 20150711

REACTIONS (2)
  - Ovarian hyperstimulation syndrome [Recovered/Resolved]
  - Pain [Recovered/Resolved]

NARRATIVE: CASE EVENT DATE: 20150725
